FAERS Safety Report 5797893-2 (Version None)
Quarter: 2008Q3

REPORT INFORMATION
  Report Type: 
  Country: None (occurrence: None)
  Receive Date: 20080702
  Receipt Date: 20080630
  Transmission Date: 20090109
  Serious: Yes (Other)
  Sender: FDA-Public Use
  Company Number: US-ASTRAZENECA-2008UW13100

PATIENT
  Age: 46 Year
  Sex: Female
  Weight: 90.3 kg

DRUGS (5)
  1. NEXIUM [Suspect]
     Indication: GASTROOESOPHAGEAL REFLUX DISEASE
     Route: 048
  2. ARIMIDEX [Suspect]
     Indication: BREAST CANCER
     Dosage: 1 MG
     Route: 048
     Dates: start: 20070101
  3. TAMOXIFEN CITRATE [Concomitant]
     Dates: start: 19980101, end: 20020101
  4. EFFEXOR [Concomitant]
  5. SYNTHROID [Concomitant]

REACTIONS (1)
  - RECURRENT CANCER [None]
